FAERS Safety Report 5108878-3 (Version None)
Quarter: 2006Q3

REPORT INFORMATION
  Report Type: 
  Country: None (occurrence: None)
  Receive Date: 20060915
  Receipt Date: 20060915
  Transmission Date: 20061208
  Serious: Yes (Other)
  Sender: FDA-Public Use
  Company Number: None

PATIENT
  Sex: Female
  Weight: 91.173 kg

DRUGS (3)
  1. TRASYLOL [Suspect]
     Indication: CARDIAC OPERATION
     Dates: start: 20060619, end: 20060619
  2. TRASYLOL [Suspect]
     Indication: OPERATIVE HAEMORRHAGE
     Dates: start: 20060619, end: 20060619
  3. TRASYLOL [Suspect]
     Indication: PROPHYLAXIS
     Dates: start: 20060619, end: 20060619

REACTIONS (2)
  - CEREBROVASCULAR ACCIDENT [None]
  - POST PROCEDURAL COMPLICATION [None]
